FAERS Safety Report 19610059 (Version 3)
Quarter: 2021Q3

REPORT INFORMATION
  Report Type: Spontaneous
  Country: PK (occurrence: PK)
  Receive Date: 20210726
  Receipt Date: 20210914
  Transmission Date: 20211014
  Serious: Yes (Death, Other)
  Sender: FDA-Public Use
  Company Number: PK-NOVOPROD-830747

PATIENT
  Age: 74 Year
  Sex: Male

DRUGS (1)
  1. MIXTARD 30 [Suspect]
     Active Substance: INSULIN HUMAN
     Indication: TYPE 2 DIABETES MELLITUS
     Dosage: 20 IU, QD(8+12 UNITS PER DAY)
     Route: 058
     Dates: start: 20201117, end: 20210425

REACTIONS (3)
  - Hyperglycaemia [Fatal]
  - Paralysis [Unknown]
  - Drug ineffective [Unknown]
